FAERS Safety Report 8102370-X (Version None)
Quarter: 2012Q1

REPORT INFORMATION
  Report Type: 
  Country: None (occurrence: None)
  Receive Date: 20120201
  Receipt Date: 20120127
  Transmission Date: 20120608
  Serious: Yes (Hospitalization)
  Sender: FDA-Public Use
  Company Number: US-PFIZER INC-2012023422

PATIENT
  Sex: Male
  Weight: 81.633 kg

DRUGS (3)
  1. EFFEXOR XR [Suspect]
     Indication: DEPRESSION
     Dosage: 150 MG, DAILY
     Route: 048
     Dates: start: 20090101
  2. METHYLIN [Suspect]
     Indication: ATTENTION DEFICIT/HYPERACTIVITY DISORDER
     Dosage: 10 MG OR 15MG DAILY
     Dates: start: 20090101, end: 20111001
  3. EFFEXOR XR [Suspect]
     Indication: ANXIETY

REACTIONS (1)
  - DELUSIONAL PERCEPTION [None]
